FAERS Safety Report 6750207-3 (Version None)
Quarter: 2010Q2

REPORT INFORMATION
  Report Type: 
  Country: None (occurrence: None)
  Receive Date: 20100601
  Receipt Date: 20100521
  Transmission Date: 20101027
  Serious: Yes (Other)
  Sender: FDA-Public Use
  Company Number: US-PFIZER INC-2010064347

PATIENT
  Sex: Male
  Weight: 68.9 kg

DRUGS (1)
  1. SUTENT [Suspect]
     Dosage: 50 MG, ALTERNATE DAY
     Route: 048
     Dates: start: 20100427

REACTIONS (2)
  - BLOOD PRESSURE INCREASED [None]
  - DERMATITIS [None]
